FAERS Safety Report 5010059-9 (Version None)
Quarter: 2006Q2

REPORT INFORMATION
  Report Type: 
  Country: None (occurrence: None)
  Receive Date: 20060523
  Receipt Date: 20060510
  Transmission Date: 20061013
  Serious: Yes (Other)
  Sender: FDA-Public Use
  Company Number: 2006059944

PATIENT
  Age: 4 Year
  Sex: Male
  Weight: 17 kg

DRUGS (1)
  1. DILANTIN [Suspect]
     Indication: CONVULSION
     Dosage: 150 MG (150 MG, 1 IN 1 D), ORAL
     Route: 048
     Dates: start: 19790401, end: 19800328

REACTIONS (7)
  - AGGRESSION [None]
  - ANOREXIA [None]
  - CONSTIPATION [None]
  - HEPATIC FUNCTION ABNORMAL [None]
  - NERVOUSNESS [None]
  - URINARY INCONTINENCE [None]
  - WEIGHT DECREASED [None]
